FAERS Safety Report 16097333 (Version 1)
Quarter: 2019Q1

REPORT INFORMATION
  Report Type: Spontaneous
  Country: IN (occurrence: IN)
  Receive Date: 20190320
  Receipt Date: 20190320
  Transmission Date: 20190418
  Serious: Yes (Death)
  Sender: FDA-Public Use
  Company Number: IN-PFIZER INC-2019121443

PATIENT
  Age: 62 Year

DRUGS (1)
  1. SUTENT [Suspect]
     Active Substance: SUNITINIB MALATE
     Indication: GASTROINTESTINAL STROMAL CANCER
     Dosage: 50 MG, 1X/DAY
     Route: 048
     Dates: start: 20181128

REACTIONS (1)
  - Death [Fatal]

NARRATIVE: CASE EVENT DATE: 20190313
